FAERS Safety Report 4407956-1 (Version None)
Quarter: 2004Q3

REPORT INFORMATION
  Report Type: 
  Country: None (occurrence: None)
  Receive Date: 20040716
  Receipt Date: 20040604
  Transmission Date: 20050211
  Serious: Yes (Hospitalization)
  Sender: FDA-Public Use
  Company Number: 2003AP00116

PATIENT
  Age: 69 Year
  Sex: Male

DRUGS (8)
  1. IRESSA [Suspect]
     Indication: LUNG ADENOCARCINOMA
     Dosage: 250 MG DAILY PO
     Route: 048
     Dates: start: 20021128, end: 20030106
  2. NORVASC [Concomitant]
  3. ISOSORBIDE MONONITRATE [Concomitant]
  4. SIGMART [Concomitant]
  5. CARBOSPLATIN [Concomitant]
  6. DOCETAXEL [Concomitant]
  7. GEMCITABINE [Concomitant]
  8. IRINOTECAN [Concomitant]

REACTIONS (1)
  - CYSTITIS HAEMORRHAGIC [None]
